FAERS Safety Report 9381582 (Version 1)
Quarter: 2013Q3

REPORT INFORMATION
  Report Type: Report from Study
  Country: AR (occurrence: AR)
  Receive Date: 20130703
  Receipt Date: 20130703
  Transmission Date: 20140515
  Serious: Yes (Other)
  Sender: FDA-Public Use
  Company Number: AR-ASTRAZENECA-2012SE82760

PATIENT
  Age: 26754 Day
  Sex: Female

DRUGS (7)
  1. AZD6140 [Suspect]
     Indication: CORONARY ARTERY DISEASE
     Route: 048
     Dates: start: 20120913, end: 20120921
  2. ISOSORBIDE MONONITRATE [Concomitant]
     Indication: MYOCARDIAL ISCHAEMIA
     Route: 048
     Dates: start: 20110208
  3. CLONAZEPAM [Concomitant]
     Indication: ANXIETY DISORDER
     Route: 048
  4. SPIRONOLACTONE [Concomitant]
     Indication: MYOCARDIAL ISCHAEMIA
     Route: 048
     Dates: start: 20110208
  5. SIMVASTATIN [Concomitant]
     Indication: MYOCARDIAL ISCHAEMIA
     Route: 048
     Dates: start: 20110203
  6. FOLIC ACID [Concomitant]
     Indication: THALASSAEMIA
     Route: 048
  7. ASA [Concomitant]
     Route: 048
     Dates: start: 20110202

REACTIONS (1)
  - Respiratory distress [Recovered/Resolved]
